FAERS Safety Report 8893724 (Version 1)
Quarter: 2012Q4

REPORT INFORMATION
  Report Type: 
  Country: US (occurrence: US)
  Receive Date: 20121107
  Receipt Date: 20121107
  Transmission Date: 20130627
  Serious: Yes (Other)
  Sender: FDA-Public Use
  Company Number: US-AMGEN-USASP2011060426

PATIENT
  Age: 73 Year
  Sex: Female
  Weight: 100.23 kg

DRUGS (11)
  1. ENBREL [Suspect]
     Indication: PRODUCT USED FOR UNKNOWN INDICATION
     Dosage: 50 mg, qwk
  2. METFORMIN [Concomitant]
     Dosage: 850 mg, UNK
  3. DIGOXIN [Concomitant]
     Dosage: 0.125 mg, UNK
  4. LASIX [Concomitant]
     Dosage: 20 mg, UNK
  5. ASPIRIN [Concomitant]
     Dosage: 81 mg, UNK
  6. WARFARIN [Concomitant]
     Dosage: 2.5 mg, UNK
  7. LIPITOR [Concomitant]
     Dosage: 10 mg, UNK
  8. METOPROLOL [Concomitant]
     Dosage: 1 mg, UNK
  9. LANTUS [Concomitant]
  10. HUMULIN [Concomitant]
  11. NOVOLOG [Concomitant]

REACTIONS (2)
  - Cardiac failure chronic [Unknown]
  - Oedema [Unknown]
